FAERS Safety Report 5633206-4 (Version None)
Quarter: 2008Q1

REPORT INFORMATION
  Report Type: 
  Country: None (occurrence: None)
  Receive Date: 20080215
  Receipt Date: 20080204
  Transmission Date: 20080703
  Serious: Yes (Life-Threatening, Other)
  Sender: FDA-Public Use
  Company Number: 2007-04365

PATIENT
  Age: 68 Year
  Sex: Female
  Weight: 80 kg

DRUGS (3)
  1. VELCADE [Suspect]
     Indication: MULTIPLE MYELOMA
     Dosage: 2.20 MG
     Dates: start: 20071206, end: 20071213
  2. DEXAMETHASONE TAB [Concomitant]
  3. ZOLEDRONIC ACID [Concomitant]

REACTIONS (2)
  - MULTIPLE MYELOMA [None]
  - PROCEDURAL COMPLICATION [None]
